FAERS Safety Report 17407822 (Version 6)
Quarter: 2025Q3

REPORT INFORMATION
  Report Type: Spontaneous
  Country: US (occurrence: US)
  Receive Date: 20200212
  Receipt Date: 20250714
  Transmission Date: 20251021
  Serious: Yes (Other)
  Sender: PFIZER
  Company Number: US-PFIZER INC-2020058827

PATIENT
  Age: 51 Year
  Sex: Female

DRUGS (7)
  1. XELJANZ XR [Suspect]
     Active Substance: TOFACITINIB CITRATE
     Indication: Rheumatoid arthritis
     Dosage: 11 MG, DAILY
     Route: 048
     Dates: start: 20200113
  2. XELJANZ XR [Suspect]
     Active Substance: TOFACITINIB CITRATE
     Dosage: 11 MG PER DAY ORALLY
     Route: 048
  3. CHOLECALCIFEROL\FISH OIL [Concomitant]
     Active Substance: CHOLECALCIFEROL\FISH OIL
  4. COLLAGEN [Concomitant]
     Active Substance: COLLAGEN
  5. PREDNISONE [Concomitant]
     Active Substance: PREDNISONE
  6. HYDROCHLORIC ACID [Concomitant]
     Active Substance: HYDROCHLORIC ACID
  7. CYSTADANE [Concomitant]
     Active Substance: BETAINE

REACTIONS (6)
  - Drug ineffective [Unknown]
  - Rheumatoid arthritis [Unknown]
  - Paraesthesia [Unknown]
  - Asthenia [Unknown]
  - Nasal congestion [Recovered/Resolved]
  - Anxiety [Not Recovered/Not Resolved]

NARRATIVE: CASE EVENT DATE: 20200101
